FAERS Safety Report 8366506-8 (Version None)
Quarter: 2012Q1

REPORT INFORMATION
  Report Type: 
  Country: None (occurrence: None)
  Receive Date: 20120323
  Receipt Date: 20110909
  Transmission Date: 20120608
  Serious: Yes (Hospitalization)
  Sender: FDA-Public Use
  Company Number: 163-21880-11041122

PATIENT
  Age: 50 Year
  Sex: Male
  Weight: 80.2867 kg

DRUGS (11)
  1. NORFLEX (ORPHENADRINE CITRATE)(100 MILLIGRAM, TABLETS [Concomitant]
  2. FOLIC ACID (FOLIC ACID)(1 MILLIGRAM, TABLETS) [Concomitant]
  3. LISINOPRIL (LISINOPRIL)(2.5 MILLIGRAM, TABLETS) [Concomitant]
  4. VELCADEC(UNKNOWN) [Concomitant]
  5. ALLOPURINOL (ALLOPURINOL)(100 MILLIGRAM, TABLETS) [Concomitant]
  6. OMEPRAZOLE (OMEPRAZOLE)(40 MILLIGRAM, TABLETS) [Concomitant]
  7. REVLIMID [Suspect]
     Indication: MULTIPLE MYELOMA
     Dosage: 15 MG, DAYS 21/28, PO, 10 MG, 1 IN 1 D, PO, 10 MG, PO
     Route: 048
     Dates: start: 20110602
  8. REVLIMID [Suspect]
     Indication: MULTIPLE MYELOMA
     Dosage: 15 MG, DAYS 21/28, PO, 10 MG, 1 IN 1 D, PO, 10 MG, PO
     Route: 048
     Dates: start: 20110401
  9. REVLIMID [Suspect]
     Indication: MULTIPLE MYELOMA
     Dosage: 15 MG, DAYS 21/28, PO, 10 MG, 1 IN 1 D, PO, 10 MG, PO
     Route: 048
     Dates: start: 20110307
  10. DEXAMETHASONE [Concomitant]
  11. DILAUDID [Concomitant]

REACTIONS (2)
  - RENAL FAILURE ACUTE [None]
  - BLOOD CREATININE INCREASED [None]
